FAERS Safety Report 12135983 (Version 2)
Quarter: 2016Q2

REPORT INFORMATION
  Report Type: Spontaneous
  Country: US (occurrence: US)
  Receive Date: 20160302
  Receipt Date: 20160422
  Transmission Date: 20160815
  Serious: Yes (Life-Threatening, Hospitalization, Other)
  Sender: FDA-Public Use
  Company Number: US-ROCHE-1717522

PATIENT
  Age: 59 Year
  Sex: Male
  Weight: 91.71 kg

DRUGS (4)
  1. ACETAMINOPHEN. [Concomitant]
     Active Substance: ACETAMINOPHEN
     Indication: PREMEDICATION
     Dosage: X1
     Route: 048
     Dates: start: 20160223
  2. GAZYVA [Suspect]
     Active Substance: OBINUTUZUMAB
     Indication: CHRONIC LYMPHOCYTIC LEUKAEMIA
     Route: 042
     Dates: start: 20160223, end: 20160223
  3. DIPHENHYDRAMINE. [Concomitant]
     Active Substance: DIPHENHYDRAMINE
     Indication: PREMEDICATION
     Dosage: X1
     Route: 040
     Dates: start: 20160223
  4. DEXAMETHASONE. [Concomitant]
     Active Substance: DEXAMETHASONE
     Indication: PREMEDICATION
     Dosage: X 1
     Route: 042
     Dates: start: 20160223

REACTIONS (9)
  - Dyspnoea [Unknown]
  - Vomiting [Recovered/Resolved]
  - Circulatory collapse [Unknown]
  - Troponin increased [Unknown]
  - Bronchospasm [Recovered/Resolved]
  - Syncope [Recovered/Resolved]
  - Cough [Recovering/Resolving]
  - Pulmonary embolism [Recovering/Resolving]
  - Nausea [Recovered/Resolved]

NARRATIVE: CASE EVENT DATE: 20160223
